FAERS Safety Report 24074790 (Version 2)
Quarter: 2025Q2

REPORT INFORMATION
  Report Type: Spontaneous
  Country: US (occurrence: US)
  Receive Date: 20240710
  Receipt Date: 20250605
  Transmission Date: 20250717
  Serious: No
  Sender: PIERRE FABRE MEDICAMENT
  Company Number: US-PFM-2023-07323

PATIENT
  Sex: Female
  Weight: 9.98 kg

DRUGS (3)
  1. HEMANGEOL [Suspect]
     Active Substance: PROPRANOLOL HYDROCHLORIDE
     Indication: Haemangioma
     Dosage: 3 ML, BID (2/DAY)
     Dates: start: 20231019
  2. HEMANGEOL [Suspect]
     Active Substance: PROPRANOLOL HYDROCHLORIDE
     Dosage: 4 ML, BID (2/DAY)
  3. HEMANGEOL [Suspect]
     Active Substance: PROPRANOLOL HYDROCHLORIDE
     Dosage: 4 ML, BID (2/DAY)

REACTIONS (5)
  - Pyrexia [Unknown]
  - Dermatitis diaper [Unknown]
  - Decreased appetite [Unknown]
  - Cyanosis [Unknown]
  - Weight decreased [Unknown]
